FAERS Safety Report 9054102 (Version 1)
Quarter: 2013Q1

REPORT INFORMATION
  Report Type: Spontaneous
  Country: MX (occurrence: MX)
  Receive Date: 20130208
  Receipt Date: 20130208
  Transmission Date: 20140127
  Serious: Yes (Death)
  Sender: FDA-Public Use
  Company Number: MX-PFIZER INC-2013051236

PATIENT
  Age: 65 Year
  Sex: Female

DRUGS (1)
  1. REVATHIO [Suspect]
     Indication: PULMONARY HYPERTENSION
     Dosage: 20 MG, UNK

REACTIONS (1)
  - Death [Fatal]
